FAERS Safety Report 4287343-X (Version None)
Quarter: 2004Q1

REPORT INFORMATION
  Report Type: 
  Country: None (occurrence: None)
  Receive Date: 20040209
  Receipt Date: 20030310
  Transmission Date: 20041129
  Serious: No
  Sender: FDA-Public Use
  Company Number: US-GLAXOSMITHKLINE-A0399672A

PATIENT
  Age: 82 Year
  Sex: Female

DRUGS (3)
  1. PAXIL CR [Suspect]
     Indication: DYSPHONIA
     Route: 048
     Dates: start: 20030203, end: 20030201
  2. ZANTAC [Concomitant]
  3. WATER PILL [Concomitant]

REACTIONS (5)
  - ATAXIA [None]
  - BALANCE DISORDER [None]
  - DIZZINESS [None]
  - FATIGUE [None]
  - NIGHTMARE [None]
